FAERS Safety Report 11075410 (Version 1)
Quarter: 2015Q2

REPORT INFORMATION
  Report Type: Spontaneous
  Country: US (occurrence: US)
  Receive Date: 20150429
  Receipt Date: 20150429
  Transmission Date: 20150821
  Serious: No
  Sender: FDA-Public Use
  Company Number: US-BIOGENIDEC-2015BI055041

PATIENT
  Sex: Male

DRUGS (1)
  1. TECFIDERA [Suspect]
     Active Substance: DIMETHYL FUMARATE
     Indication: MULTIPLE SCLEROSIS
     Route: 048
     Dates: start: 20150407

REACTIONS (6)
  - Headache [Unknown]
  - Skin warm [Unknown]
  - Flushing [Recovered/Resolved]
  - Erythema [Unknown]
  - Pain [Unknown]
  - Pyrexia [Unknown]
